FAERS Safety Report 10029423 (Version 1)
Quarter: 2014Q1

REPORT INFORMATION
  Report Type: Spontaneous
  Country: JP (occurrence: JP)
  Receive Date: 20140322
  Receipt Date: 20140322
  Transmission Date: 20141002
  Serious: Yes (Other)
  Sender: FDA-Public Use
  Company Number: PHHY2014JP032258

PATIENT
  Age: 73 Year
  Sex: Female

DRUGS (2)
  1. ONBREZ [Suspect]
     Dosage: UNK
     Route: 055
  2. VANCOMYCIN [Concomitant]
     Dosage: UNK UKN, UNK

REACTIONS (1)
  - Angioedema [Unknown]
